FAERS Safety Report 9752238 (Version 1)
Quarter: 2013Q4

REPORT INFORMATION
  Report Type: Spontaneous
  Country: US (occurrence: None)
  Receive Date: 20131211
  Receipt Date: 20131211
  Transmission Date: 20140711
  Serious: No
  Sender: FDA-Public Use
  Company Number: None

PATIENT
  Age: 51 Year
  Sex: Male
  Weight: 74.84 kg

DRUGS (1)
  1. APIDRA [Suspect]
     Dosage: 5 UNITS FOR MEAL THREE TIMES DAILY GIVEN INTO/UNDER THE SKIN

REACTIONS (3)
  - Dizziness [None]
  - Dizziness [None]
  - Product substitution issue [None]
